FAERS Safety Report 7795532-2 (Version None)
Quarter: 2011Q4

REPORT INFORMATION
  Report Type: 
  Country: None (occurrence: None)
  Receive Date: 20111004
  Receipt Date: 20110928
  Transmission Date: 20120403
  Serious: Yes (Other)
  Sender: FDA-Public Use
  Company Number: US-AMGEN-USASP2011037544

PATIENT
  Age: 74 Year
  Sex: Male

DRUGS (1)
  1. NPLATE [Suspect]
     Indication: IDIOPATHIC THROMBOCYTOPENIC PURPURA
     Dosage: 6 MUG/KG, UNK
     Dates: start: 20090910

REACTIONS (4)
  - URINARY TRACT INFECTION [None]
  - THROMBOCYTOPENIA [None]
  - DYSPNOEA [None]
  - BIOPSY BONE MARROW ABNORMAL [None]
